FAERS Safety Report 18989839 (Version 1)
Quarter: 2021Q1

REPORT INFORMATION
  Report Type: Spontaneous
  Country: IN (occurrence: IN)
  Receive Date: 20210310
  Receipt Date: 20210310
  Transmission Date: 20210420
  Serious: Yes (Hospitalization, Other)
  Sender: FDA-Public Use
  Company Number: IN-SA-2021SA070212

PATIENT
  Age: 8 Year
  Sex: Male

DRUGS (13)
  1. MEROPENEM. [Concomitant]
     Active Substance: MEROPENEM
     Indication: TUBERCULOSIS
     Dosage: UNK
  2. OXYGEN. [Concomitant]
     Active Substance: OXYGEN
     Indication: TUBERCULOSIS
     Dosage: 70 %
  3. RIFAMPICIN [Suspect]
     Active Substance: RIFAMPIN
     Indication: TUBERCULOSIS
     Dosage: 450 MG
  4. RIFAMPICIN [Suspect]
     Active Substance: RIFAMPIN
     Indication: ACINETOBACTER INFECTION
     Dosage: UNK
  5. CEFTRIAXONE;EDETIC ACID;SULBACTAM [Concomitant]
     Indication: ACINETOBACTER INFECTION
     Dosage: 1.5 MG, Q12H
  6. LEVOFLOXACIN. [Concomitant]
     Active Substance: LEVOFLOXACIN
     Indication: ACINETOBACTER INFECTION
     Dosage: 500 MG, QD
  7. AMIKACIN. [Concomitant]
     Active Substance: AMIKACIN
     Indication: ACINETOBACTER INFECTION
     Dosage: 500 MG, QD
  8. COLISTIN [Concomitant]
     Active Substance: COLISTIN
     Dosage: 3000000 IU, Q12H
  9. ISONIAZID. [Concomitant]
     Active Substance: ISONIAZID
     Indication: TUBERCULOSIS
     Dosage: 300 MG
  10. VANCOMYCIN [Concomitant]
     Active Substance: VANCOMYCIN
     Indication: TUBERCULOSIS
     Dosage: UNK
  11. VANCOMYCIN [Concomitant]
     Active Substance: VANCOMYCIN
     Indication: ACINETOBACTER INFECTION
     Dosage: 500 MG, Q8H
  12. ETHAMBUTOL [Concomitant]
     Active Substance: ETHAMBUTOL HYDROCHLORIDE
     Indication: TUBERCULOSIS
     Dosage: 600 MG, QD
  13. COLISTIN [Concomitant]
     Active Substance: COLISTIN
     Indication: ACINETOBACTER INFECTION
     Dosage: 6000000 IU, LOADING DOSE

REACTIONS (3)
  - Haemorrhagic diathesis [Unknown]
  - Liver function test abnormal [Unknown]
  - Hepatotoxicity [Unknown]
